FAERS Safety Report 22086433 (Version 1)
Quarter: 2023Q1

REPORT INFORMATION
  Report Type: Spontaneous
  Country: CN (occurrence: CN)
  Receive Date: 20230312
  Receipt Date: 20230312
  Transmission Date: 20230418
  Serious: Yes (Other)
  Sender: FDA-Public Use
  Company Number: CN-002147023-NVSC2023CN055873

PATIENT
  Sex: Female

DRUGS (1)
  1. LETROZOLE [Suspect]
     Active Substance: LETROZOLE
     Indication: Premature menopause
     Dosage: 5 MG/TIME, ONCE A DAY, CONTINUOUSLY FOR 5 DAYS
     Route: 048

REACTIONS (2)
  - Ovarian hyperstimulation syndrome [Unknown]
  - Product use in unapproved indication [Unknown]
